FAERS Safety Report 4755530-X (Version None)
Quarter: 2005Q3

REPORT INFORMATION
  Report Type: 
  Country: None (occurrence: None)
  Receive Date: 20050830
  Receipt Date: 20050506
  Transmission Date: 20060218
  Serious: Yes (Hospitalization)
  Sender: FDA-Public Use
  Company Number: US-BRISTOL-MYERS SQUIBB COMPANY-12958880

PATIENT
  Age: 8 Year
  Sex: Male

DRUGS (3)
  1. ABILIFY [Suspect]
     Indication: BIPOLAR DISORDER
     Route: 048
     Dates: start: 20030101, end: 20050401
  2. ABILIFY [Suspect]
     Indication: AGGRESSION
     Route: 048
     Dates: start: 20030101, end: 20050401
  3. ABILIFY [Suspect]
     Indication: OPPOSITIONAL DEFIANT DISORDER
     Route: 048
     Dates: start: 20030101, end: 20050401

REACTIONS (2)
  - MALAISE [None]
  - PNEUMONIA [None]
